FAERS Safety Report 5062426-5 (Version None)
Quarter: 2006Q3

REPORT INFORMATION
  Report Type: 
  Country: None (occurrence: None)
  Receive Date: 20060721
  Receipt Date: 20060704
  Transmission Date: 20061208
  Serious: Yes (Hospitalization)
  Sender: FDA-Public Use
  Company Number: FR200604002841

PATIENT
  Age: 78 Year
  Sex: Female

DRUGS (5)
  1. FORTEO [Suspect]
     Indication: OSTEOPOROSIS
     Dosage: 20 UG DAILY (1/D)SUBCUTANEOUS
     Route: 058
     Dates: start: 20050112, end: 20060201
  2. FORTEO PEN (FORTEO PEN) [Concomitant]
  3. ENALAPRIL MALEATE AND HYDROCHLOROTHIAZIDE [Concomitant]
  4. PREVISCAN (FLUINDIONE) [Concomitant]
  5. TROLOVOL (PENICILLAMINE) [Concomitant]

REACTIONS (1)
  - MYOCARDIAL INFARCTION [None]
